FAERS Safety Report 18580556 (Version 2)
Quarter: 2020Q4

REPORT INFORMATION
  Report Type: Spontaneous
  Country: US (occurrence: US)
  Receive Date: 20201204
  Receipt Date: 20201214
  Transmission Date: 20210114
  Serious: Yes (Hospitalization, Other)
  Sender: FDA-Public Use
  Company Number: US-PFIZER INC-2018426930

PATIENT
  Age: 59 Year
  Sex: Female
  Weight: 108.86 kg

DRUGS (4)
  1. CYMBALTA [Concomitant]
     Active Substance: DULOXETINE HYDROCHLORIDE
     Indication: PAIN
     Dosage: 60 MG, DAILY
  2. XELJANZ XR [Suspect]
     Active Substance: TOFACITINIB CITRATE
     Indication: RHEUMATOID ARTHRITIS
     Dosage: 11 MG, DAILY
     Route: 048
     Dates: start: 2017
  3. CYMBALTA [Concomitant]
     Active Substance: DULOXETINE HYDROCHLORIDE
     Indication: DEPRESSION
  4. NABUMETONE. [Concomitant]
     Active Substance: NABUMETONE
     Indication: INFLAMMATION
     Dosage: 750 MG

REACTIONS (11)
  - Arthropathy [Recovered/Resolved]
  - Rheumatoid arthritis [Unknown]
  - Dysstasia [Unknown]
  - Joint swelling [Unknown]
  - Bone pain [Unknown]
  - Pain [Unknown]
  - Gait disturbance [Unknown]
  - Inflammation [Unknown]
  - Movement disorder [Unknown]
  - Crying [Unknown]
  - Loss of personal independence in daily activities [Unknown]

NARRATIVE: CASE EVENT DATE: 20180809
